FAERS Safety Report 15494187 (Version 2)
Quarter: 2018Q4

REPORT INFORMATION
  Report Type: Spontaneous
  Country: BE (occurrence: BE)
  Receive Date: 20181012
  Receipt Date: 20181023
  Transmission Date: 20190205
  Serious: Yes (Hospitalization)
  Sender: FDA-Public Use
  Company Number: BE-PFIZER INC-2018407120

PATIENT
  Age: 68 Year
  Sex: Female
  Weight: 58 kg

DRUGS (9)
  1. FOLIC ACID. [Concomitant]
     Active Substance: FOLIC ACID
     Indication: PROPHYLAXIS
     Dosage: 1 MG, 1X/DAY
     Route: 048
     Dates: start: 2000
  2. PARACETAMOL [Concomitant]
     Active Substance: ACETAMINOPHEN
     Dosage: 1 G, AS NEEDED
     Route: 048
  3. UTROGESTAN [Concomitant]
     Active Substance: PROGESTERONE
     Dosage: 100 MG, 1X/DAY
     Route: 048
     Dates: start: 2013
  4. OESTROGEL [Concomitant]
     Active Substance: ESTRADIOL
     Dosage: UNK
     Dates: start: 2013
  5. OLUMIANT [Suspect]
     Active Substance: BARICITINIB
     Indication: RHEUMATOID ARTHRITIS
     Dosage: 4 MG, 1X/DAY
     Route: 048
     Dates: start: 20180608, end: 20180829
  6. EMCONCOR [Concomitant]
     Active Substance: BISOPROLOL FUMARATE
     Dosage: 1 DF, 1X/DAY (2.5MG - 5 MG EVERY OTHER DAY)
     Route: 048
     Dates: start: 2010
  7. LEDERTREXATE [Suspect]
     Active Substance: METHOTREXATE
     Indication: RHEUMATOID ARTHRITIS
     Dosage: 15 MG, WEEKLY
     Route: 048
     Dates: start: 2000, end: 20180829
  8. FELDENE [Interacting]
     Active Substance: PIROXICAM
     Indication: RHEUMATOID ARTHRITIS
     Dosage: 10 MG, 1X/DAY
     Route: 048
     Dates: start: 2009
  9. OMEPRAZOLE. [Interacting]
     Active Substance: OMEPRAZOLE
     Indication: PROPHYLAXIS
     Dosage: 20 MG, 1X/DAY
     Route: 048
     Dates: start: 2009

REACTIONS (2)
  - Alveolitis allergic [Recovering/Resolving]
  - Drug interaction [Recovering/Resolving]

NARRATIVE: CASE EVENT DATE: 20180827
